FAERS Safety Report 4427548-8 (Version None)
Quarter: 2004Q3

REPORT INFORMATION
  Report Type: 
  Country: None (occurrence: None)
  Receive Date: 20040812
  Receipt Date: 20040729
  Transmission Date: 20050211
  Serious: Yes (Hospitalization)
  Sender: FDA-Public Use
  Company Number: 2004GB01434

PATIENT
  Age: 35 Year
  Sex: Female
  Weight: 50 kg

DRUGS (4)
  1. SEROQUEL [Suspect]
     Dosage: 150 MG BID PO
     Route: 048
     Dates: start: 20040415
  2. DIAZEPAM [Concomitant]
  3. VENLAFAXINE HCL [Concomitant]
  4. OLANZAPINE [Concomitant]

REACTIONS (2)
  - AGGRESSION [None]
  - ALCOHOL INTERACTION [None]
